FAERS Safety Report 13717381 (Version 3)
Quarter: 2018Q2

REPORT INFORMATION
  Report Type: Spontaneous
  Country: IT (occurrence: IT)
  Receive Date: 20170705
  Receipt Date: 20180518
  Transmission Date: 20180711
  Serious: Yes (Life-Threatening, Hospitalization, Other)
  Sender: FDA-Public Use
  Company Number: IT-PFIZER INC-2017275899

PATIENT
  Sex: Female
  Weight: .8 kg

DRUGS (1)
  1. IBUPROFEN. [Suspect]
     Active Substance: IBUPROFEN
     Indication: PATENT DUCTUS ARTERIOSUS
     Dosage: OVER 2 HOURS

REACTIONS (1)
  - Necrotising colitis [Recovered/Resolved]
